FAERS Safety Report 9151128 (Version 1)
Quarter: 2013Q1

REPORT INFORMATION
  Report Type: Spontaneous
  Country: US (occurrence: US)
  Receive Date: 20130308
  Receipt Date: 20130308
  Transmission Date: 20140127
  Serious: No
  Sender: FDA-Public Use
  Company Number: US-GLAXOSMITHKLINE-A0971535A

PATIENT
  Age: 60 Year
  Sex: Female
  Weight: 60.9 kg

DRUGS (4)
  1. NICORETTE [Suspect]
     Indication: SMOKING CESSATION THERAPY
  2. NICOTROL [Suspect]
     Indication: SMOKING CESSATION THERAPY
     Route: 055
     Dates: start: 2008
  3. ATROVENT [Concomitant]
     Indication: OXYGEN SATURATION DECREASED
     Route: 055
  4. VENTOLIN HFA [Concomitant]
     Indication: OXYGEN SATURATION DECREASED
     Route: 055

REACTIONS (3)
  - Drug ineffective [Unknown]
  - Product quality issue [Unknown]
  - Nonspecific reaction [Unknown]
